FAERS Safety Report 18912491 (Version 1)
Quarter: 2021Q1

REPORT INFORMATION
  Report Type: Report from Study
  Country: DE (occurrence: DE)
  Receive Date: 20210218
  Receipt Date: 20210218
  Transmission Date: 20210420
  Serious: Yes (Hospitalization, Other)
  Sender: FDA-Public Use
  Company Number: DE-JNJFOC-A-CH2018-183775

PATIENT
  Age: 78 Year
  Sex: Male
  Weight: 92.1 kg

DRUGS (38)
  1. DOXEPIN [Concomitant]
     Active Substance: DOXEPIN
     Indication: SLEEP DISORDER
     Dosage: 75 MG, OD
     Route: 048
     Dates: start: 2002
  2. JANUVIA [Concomitant]
     Active Substance: SITAGLIPTIN PHOSPHATE
     Dosage: 25 MG, QD
     Dates: start: 20190208
  3. TORASEMID [Concomitant]
     Active Substance: TORSEMIDE
     Dosage: 10 MG, BID
     Dates: start: 20181213, end: 20181222
  4. ALDACTONE [Concomitant]
     Active Substance: SPIRONOLACTONE
     Dosage: 25 MG, QD
     Dates: start: 201702, end: 20180427
  5. NOVAMINSULFON [Concomitant]
     Active Substance: METAMIZOLE
     Indication: PAIN
     Dosage: 500 MG, PRN
     Dates: start: 201812
  6. KALINOR [Concomitant]
     Indication: PROPHYLAXIS
     Dosage: 40 MMOL, QD
     Dates: start: 20181218
  7. CEFTRIAXONE. [Concomitant]
     Active Substance: CEFTRIAXONE
     Indication: URINARY TRACT INFECTION
     Dosage: UNK
     Dates: start: 201811, end: 201811
  8. KALINOR?BRAUSETABLETTEN [Concomitant]
     Active Substance: POTASSIUM CARBONATE\POTASSIUM CITRATE
     Indication: PROPHYLAXIS
     Dosage: 40 MMOL, QD
     Dates: start: 20181218
  9. JANUVIA [Concomitant]
     Active Substance: SITAGLIPTIN PHOSPHATE
     Indication: TYPE 2 DIABETES MELLITUS
     Dosage: 50 MG, OD
     Route: 048
     Dates: start: 20181027, end: 20190207
  10. TORASEMID [Concomitant]
     Active Substance: TORSEMIDE
     Indication: CARDIAC FAILURE
     Dosage: 30 MG, QD
     Dates: start: 20181016, end: 20181028
  11. ALDACTONE [Concomitant]
     Active Substance: SPIRONOLACTONE
     Indication: OEDEMA PERIPHERAL
     Dosage: 50 MG, QD
     Dates: start: 20181213
  12. KALINOR RETARD P [Concomitant]
     Active Substance: POTASSIUM CHLORIDE
     Indication: PROPHYLAXIS
     Dosage: 3000 MG, OD
     Route: 048
     Dates: start: 20181025
  13. SORTIS [Concomitant]
     Active Substance: ATORVASTATIN
     Indication: HYPERCHOLESTEROLAEMIA
     Dosage: 10 MG, QD
     Dates: start: 20181025, end: 201902
  14. TORASEMID [Concomitant]
     Active Substance: TORSEMIDE
     Indication: OEDEMA PERIPHERAL
     Dosage: 5 MG, BID
     Dates: start: 201811, end: 201812
  15. TOREM [Concomitant]
     Active Substance: TORSEMIDE
     Indication: CARDIAC FAILURE
     Dosage: 10 MG, BID
     Dates: start: 20181213, end: 20181222
  16. PLACEBO [Suspect]
     Active Substance: UNSPECIFIED INGREDIENT
     Indication: CARDIAC FAILURE
     Dosage: 10 MG, OD
     Route: 048
     Dates: start: 20180427
  17. ALDACTONE [Concomitant]
     Active Substance: SPIRONOLACTONE
     Dosage: 25 MG, QD
     Dates: start: 20181026, end: 20181026
  18. PLACEBO [Suspect]
     Active Substance: UNSPECIFIED INGREDIENT
     Indication: PULMONARY VASCULAR DISORDER
     Dosage: 10 MG, OD
     Route: 048
     Dates: start: 20180223, end: 20180321
  19. PLACEBO [Suspect]
     Active Substance: UNSPECIFIED INGREDIENT
     Dosage: 10 MG, OD
     Route: 048
     Dates: start: 20180322, end: 20180426
  20. MARCOUMAR [Concomitant]
     Active Substance: PHENPROCOUMON
     Indication: THROMBOSIS PROPHYLAXIS
     Dosage: 3 MG, PRN
     Route: 048
     Dates: start: 2012
  21. ALLOPURINOL. [Concomitant]
     Active Substance: ALLOPURINOL
     Indication: HYPERURICAEMIA
     Dosage: 100 MG, OD
     Route: 048
     Dates: start: 2014
  22. SORTIS [Concomitant]
     Active Substance: ATORVASTATIN
     Dosage: 20 MG, QD
     Dates: start: 201702, end: 20181024
  23. TORASEMID [Concomitant]
     Active Substance: TORSEMIDE
     Indication: FLUID RETENTION
     Dosage: 10 MG, QD
     Dates: start: 2014, end: 20180925
  24. TORASEMID [Concomitant]
     Active Substance: TORSEMIDE
     Dosage: 15 MG, QD
     Dates: start: 20180925, end: 20181016
  25. TORASEMID [Concomitant]
     Active Substance: TORSEMIDE
     Dosage: 15 MG, BID
     Dates: start: 20181223, end: 20190111
  26. TOREM [Concomitant]
     Active Substance: TORSEMIDE
     Dosage: 25 MG, QD
     Dates: start: 20190112, end: 20190317
  27. ALDACTONE [Concomitant]
     Active Substance: SPIRONOLACTONE
     Dosage: 50 MG, QD
     Dates: start: 20190504
  28. METFORMIN [Concomitant]
     Active Substance: METFORMIN HYDROCHLORIDE
     Indication: TYPE 2 DIABETES MELLITUS
     Dosage: 500 MG, BID
     Route: 048
     Dates: start: 2002, end: 20181026
  29. XIPAMIDE [Concomitant]
     Active Substance: XIPAMIDE
     Indication: FLUID RETENTION
     Dosage: 10 MG, QD
     Dates: start: 20181024, end: 20181028
  30. BISOPROLOL [Concomitant]
     Active Substance: BISOPROLOL
     Indication: HYPERTENSION
     Dosage: 2.5 MG, OD
     Route: 048
     Dates: start: 2002
  31. OXYGEN. [Concomitant]
     Active Substance: OXYGEN
     Indication: RESPIRATORY FAILURE
     Dosage: 2 L, PER MIN
     Route: 055
     Dates: start: 201702
  32. TOREM [Concomitant]
     Active Substance: TORSEMIDE
     Indication: OEDEMA PERIPHERAL
     Dosage: 15 MG, BID
     Dates: start: 20181223, end: 20190111
  33. TOREM [Concomitant]
     Active Substance: TORSEMIDE
     Dosage: 35 MG, OD
     Dates: start: 20190507
  34. ALDACTONE [Concomitant]
     Active Substance: SPIRONOLACTONE
     Dosage: 50 MG, QD
     Dates: start: 20181027, end: 201811
  35. SPIOLTO RESPIMAT [Concomitant]
     Active Substance: OLODATEROL HYDROCHLORIDE\TIOTROPIUM BROMIDE MONOHYDRATE
     Indication: RESPIRATORY FAILURE
     Dosage: 5 UG, OD
     Route: 055
     Dates: start: 201702
  36. SORTIS [Concomitant]
     Active Substance: ATORVASTATIN
     Dosage: 20 MG, QD
     Dates: start: 201902
  37. TORASEMID [Concomitant]
     Active Substance: TORSEMIDE
     Dosage: 10 MG, BID
     Dates: start: 20181027, end: 201811
  38. TOREM [Concomitant]
     Active Substance: TORSEMIDE
     Dosage: 15 MG, BID
     Dates: start: 20190318

REACTIONS (9)
  - Pneumonia [Recovered/Resolved]
  - Oedema peripheral [Recovered/Resolved]
  - Acute kidney injury [Recovered/Resolved]
  - Weight increased [Not Recovered/Not Resolved]
  - Fluid retention [Recovered/Resolved]
  - Concomitant disease aggravated [Recovered/Resolved]
  - Cardiac failure [Recovered/Resolved]
  - Hypokalaemia [Recovered/Resolved]
  - International normalised ratio increased [Recovered/Resolved]

NARRATIVE: CASE EVENT DATE: 20181212
